FAERS Safety Report 16007282 (Version 2)
Quarter: 2019Q1

REPORT INFORMATION
  Report Type: Report from Study
  Country: US (occurrence: US)
  Receive Date: 20190226
  Receipt Date: 20190312
  Transmission Date: 20190418
  Serious: Yes (Hospitalization)
  Sender: FDA-Public Use
  Company Number: US-PFIZER INC-2019074093

PATIENT
  Age: 16 Year
  Sex: Male
  Weight: 66 kg

DRUGS (23)
  1. IFOSFAMIDE. [Concomitant]
     Active Substance: IFOSFAMIDE
     Dosage: 800MG/M2 IV OVER 60 MIN ON DAYS 1-5
     Route: 042
     Dates: start: 20190124, end: 20190128
  2. CYCLOPHOSPHAMIDE. [Concomitant]
     Active Substance: CYCLOPHOSPHAMIDE
     Dosage: 200 MG/M2, OVER 15-30 MINUTES ON DAYS 1-5
     Route: 042
     Dates: start: 20190103, end: 20190107
  3. CHLORHEXIDINE GLUCONATE. [Concomitant]
     Active Substance: CHLORHEXIDINE GLUCONATE
     Dosage: UNK
  4. GRANISETRON [Concomitant]
     Active Substance: GRANISETRON
  5. LORAZEPAM. [Concomitant]
     Active Substance: LORAZEPAM
  6. CYTARABINE. [Concomitant]
     Active Substance: CYTARABINE
     Dosage: 150 MG/M2, OVER 1-30 MINUTES Q12 HOURS ON DAYS 4 AND 5 (TOTAL 4 DOSES)
     Route: 042
     Dates: start: 20190127, end: 20190129
  7. LIDOCAINE. [Concomitant]
     Active Substance: LIDOCAINE
     Route: 061
  8. PROMETHAZINE [Concomitant]
     Active Substance: PROMETHAZINE\PROMETHAZINE HYDROCHLORIDE
  9. METHOTREXATE SODIUM. [Concomitant]
     Active Substance: METHOTREXATE SODIUM
     Dosage: 3000MG/M2, OVER 3 HOURS ON DAY 1
     Route: 042
     Dates: start: 20190125, end: 20190125
  10. VP-16 [Concomitant]
     Active Substance: ETOPOSIDE
     Dosage: 100MG/M2 IV OVER 2 HOURS ON DAYS 4 AND 5
     Route: 042
     Dates: start: 20190127, end: 20190128
  11. CEFEPIME [Concomitant]
     Active Substance: CEFEPIME HYDROCHLORIDE
  12. HEPARIN [Concomitant]
     Active Substance: HEPARIN SODIUM
  13. NALOXONE [Concomitant]
     Active Substance: NALOXONE
  14. FILGRASTIM [Concomitant]
     Active Substance: FILGRASTIM
  15. DIPHENHYDRAMINE. [Concomitant]
     Active Substance: DIPHENHYDRAMINE
  16. FAMOTIDINE. [Concomitant]
     Active Substance: FAMOTIDINE
  17. CRIZOTINIB [Suspect]
     Active Substance: CRIZOTINIB
     Dosage: 165 MG/M2, BID ON DAYS 1-21
     Route: 048
     Dates: start: 20190124, end: 20190204
  18. DEXAMETHASONE. [Concomitant]
     Active Substance: DEXAMETHASONE
     Dosage: 5MG/M2, BID ON DAYS 1-5
     Route: 048
     Dates: start: 20190124, end: 20190129
  19. OXYCODONE [Concomitant]
     Active Substance: OXYCODONE
  20. DOXORUBICIN HYDROCHLORIDE. [Concomitant]
     Active Substance: DOXORUBICIN HYDROCHLORIDE
     Dosage: COURSE B: 25MG/M2 IV OVER 1-15 MIN ON DAYS 4 AND 5
     Route: 042
     Dates: start: 20190107, end: 20190108
  21. ACETAMINOPHEN. [Concomitant]
     Active Substance: ACETAMINOPHEN
  22. CLINDAMYCIN. [Concomitant]
     Active Substance: CLINDAMYCIN
  23. MORPHINE [Concomitant]
     Active Substance: MORPHINE

REACTIONS (1)
  - Embolism [Recovering/Resolving]

NARRATIVE: CASE EVENT DATE: 20190207
